FAERS Safety Report 9116939 (Version 1)
Quarter: 2013Q1

REPORT INFORMATION
  Report Type: Spontaneous
  Country: US (occurrence: US)
  Receive Date: 20130225
  Receipt Date: 20130225
  Transmission Date: 20140127
  Serious: No
  Sender: FDA-Public Use
  Company Number: US-PFIZER INC-2013066372

PATIENT
  Age: 19 Year
  Sex: Male
  Weight: 90.7 kg

DRUGS (3)
  1. DOXYCYCLINE HYCLATE [Suspect]
     Indication: PLEURISY
     Dosage: 100 MG, 1X/DAY
     Dates: start: 20120710, end: 201207
  2. ETODOLAC [Suspect]
     Indication: PLEURISY
     Dosage: UNK
     Dates: start: 20120710, end: 201207
  3. SUCRALFATE [Suspect]
     Indication: PLEURISY
     Dosage: UNK
     Dates: start: 20120710, end: 201207

REACTIONS (3)
  - Memory impairment [Not Recovered/Not Resolved]
  - Headache [Not Recovered/Not Resolved]
  - Somnolence [Not Recovered/Not Resolved]
